FAERS Safety Report 14329667 (Version 4)
Quarter: 2018Q2

REPORT INFORMATION
  Report Type: Spontaneous
  Country: DE (occurrence: DE)
  Receive Date: 20171227
  Receipt Date: 20180507
  Transmission Date: 20180711
  Serious: Yes (Life-Threatening, Hospitalization, Other)
  Sender: FDA-Public Use
  Company Number: PHHY2017DE186035

PATIENT
  Age: 20 Year
  Sex: Female

DRUGS (17)
  1. ASPIRIN. [Concomitant]
     Active Substance: ASPIRIN
     Indication: ODYNOPHAGIA
     Dosage: UNK
     Route: 065
  2. CLINDAMYCIN. [Suspect]
     Active Substance: CLINDAMYCIN
     Indication: LYMPHADENOPATHY
     Dosage: UNK
     Route: 065
  3. CLINDAMYCIN. [Suspect]
     Active Substance: CLINDAMYCIN
     Indication: ANTIBIOTIC THERAPY
  4. PARACETAMOL [Suspect]
     Active Substance: ACETAMINOPHEN
     Indication: PYREXIA
     Dosage: 2 G, QD FOR APPROXIMATELY 1 WEEK
     Route: 065
  5. ACETAMINOPHEN. [Suspect]
     Active Substance: ACETAMINOPHEN
     Indication: PYREXIA
     Dosage: 2 G, QD
     Route: 065
  6. CEFAZOLIN [Suspect]
     Active Substance: CEFAZOLIN
     Indication: LYMPHADENOPATHY
  7. CEFAZOLIN [Suspect]
     Active Substance: CEFAZOLIN
     Indication: ANTIBIOTIC THERAPY
  8. ASPIRIN. [Concomitant]
     Active Substance: ASPIRIN
     Indication: LYMPHADENOPATHY
  9. CIPROFLOXACIN. [Suspect]
     Active Substance: CIPROFLOXACIN
     Indication: LYMPHADENOPATHY
  10. CEFAZOLIN [Suspect]
     Active Substance: CEFAZOLIN
     Indication: PYREXIA
     Dosage: UNK
     Route: 042
  11. AMOXICILLIN. [Suspect]
     Active Substance: AMOXICILLIN
     Indication: LYMPHADENOPATHY
  12. AMOXICILLIN. [Suspect]
     Active Substance: AMOXICILLIN
     Indication: ODYNOPHAGIA
     Dosage: UNK
     Route: 065
  13. AMOXICILLIN. [Suspect]
     Active Substance: AMOXICILLIN
     Indication: ANTIBIOTIC THERAPY
  14. CIPROFLOXACIN. [Suspect]
     Active Substance: CIPROFLOXACIN
     Indication: PYREXIA
     Dosage: UNK
     Route: 065
  15. CIPROFLOXACIN. [Suspect]
     Active Substance: CIPROFLOXACIN
     Indication: ANTIBIOTIC THERAPY
  16. CLINDAMYCIN. [Suspect]
     Active Substance: CLINDAMYCIN
     Indication: ODYNOPHAGIA
  17. CIPROFLOXACIN. [Suspect]
     Active Substance: CIPROFLOXACIN
     Indication: ODYNOPHAGIA

REACTIONS (7)
  - Rash erythematous [Unknown]
  - Rash [Recovered/Resolved]
  - Lymphadenopathy [Recovered/Resolved]
  - Acute hepatic failure [Recovered/Resolved]
  - Drug-induced liver injury [Recovered/Resolved]
  - Hepatic encephalopathy [Recovered/Resolved]
  - Pruritus generalised [Unknown]
